FAERS Safety Report 16049309 (Version 1)
Quarter: 2019Q1

REPORT INFORMATION
  Report Type: Spontaneous
  Country: FR (occurrence: FR)
  Receive Date: 20190307
  Receipt Date: 20190307
  Transmission Date: 20190418
  Serious: Yes (Hospitalization)
  Sender: FDA-Public Use
  Company Number: FR-009507513-2009SP020130

PATIENT
  Age: 70 Year
  Sex: Male

DRUGS (4)
  1. CELESTENE (BETAMETHASONE) [Suspect]
     Active Substance: BETAMETHASONE
     Indication: SINUSITIS
     Dosage: UNK
     Route: 048
     Dates: start: 20081205, end: 200812
  2. ORELOX [Suspect]
     Active Substance: CEFPODOXIME
     Indication: SINUSITIS
     Dosage: UNK
     Route: 048
     Dates: start: 20081205, end: 200812
  3. CRESTOR [Concomitant]
     Active Substance: ROSUVASTATIN CALCIUM
     Indication: HYPERCHOLESTEROLAEMIA
     Dosage: NI
     Route: 048
     Dates: end: 200812
  4. MUCOMYST [Concomitant]
     Active Substance: ACETYLCYSTEINE
     Indication: SINUSITIS
     Dosage: NI
     Route: 065
     Dates: start: 20081205

REACTIONS (1)
  - Pancreatitis [Recovered/Resolved]

NARRATIVE: CASE EVENT DATE: 20081210
